FAERS Safety Report 12619771 (Version 1)
Quarter: 2016Q3

REPORT INFORMATION
  Report Type: Spontaneous
  Country: US (occurrence: US)
  Receive Date: 20160803
  Receipt Date: 20160803
  Transmission Date: 20161109
  Serious: No
  Sender: FDA-Public Use
  Company Number: US-B.I. PHARMACEUTICALS,INC./RIDGEFIELD-2016-BI-48462BP

PATIENT
  Age: 44 Year
  Sex: Female
  Weight: 92.99 kg

DRUGS (6)
  1. CYCLOBENZAPRINE [Concomitant]
     Active Substance: CYCLOBENZAPRINE
     Indication: INTERVERTEBRAL DISC PROTRUSION
     Dosage: 10 MG
     Route: 065
     Dates: start: 2015
  2. OMEGA FISH OIL WITH OMEGA 3 [Concomitant]
     Indication: INFLAMMATION
     Dosage: 1000 MG
     Route: 065
  3. GINGER. [Concomitant]
     Active Substance: GINGER
     Indication: INFLAMMATION
     Dosage: STRENGTH: 500MG
     Route: 065
  4. CINNAMON. [Concomitant]
     Active Substance: CINNAMON
     Indication: INFLAMMATION
     Dosage: STRENGTH: 500MG
     Route: 065
  5. MOBIC [Suspect]
     Active Substance: MELOXICAM
     Indication: INTERVERTEBRAL DISC PROTRUSION
     Dosage: 30 MG
     Route: 065
     Dates: start: 2015
  6. TUMERIC [Concomitant]
     Active Substance: TURMERIC
     Indication: INFLAMMATION
     Dosage: 1000 MG
     Route: 065
     Dates: start: 201603

REACTIONS (3)
  - Pain [Not Recovered/Not Resolved]
  - Pain in extremity [Not Recovered/Not Resolved]
  - Hypoaesthesia [Not Recovered/Not Resolved]

NARRATIVE: CASE EVENT DATE: 20160629
